FAERS Safety Report 7961024-0 (Version None)
Quarter: 2011Q4

REPORT INFORMATION
  Report Type: 
  Country: None (occurrence: None)
  Receive Date: 20111207
  Receipt Date: 20111205
  Transmission Date: 20120403
  Serious: No
  Sender: FDA-Public Use
  Company Number: US-PFIZER INC-2011243796

PATIENT
  Sex: Female

DRUGS (2)
  1. IMITREX [Suspect]
     Dosage: UNK
  2. RELPAX [Suspect]
     Indication: HEADACHE
     Dosage: UNK

REACTIONS (3)
  - DRUG EFFECT DELAYED [None]
  - CHEST DISCOMFORT [None]
  - FATIGUE [None]
